FAERS Safety Report 23217407 (Version 3)
Quarter: 2024Q1

REPORT INFORMATION
  Report Type: Spontaneous
  Country: JP (occurrence: JP)
  Receive Date: 20231122
  Receipt Date: 20240123
  Transmission Date: 20240410
  Serious: No
  Sender: FDA-Public Use
  Company Number: JP-PFIZER INC-PV202300186032

PATIENT
  Sex: Male

DRUGS (1)
  1. NGENLA [Suspect]
     Active Substance: SOMATROGON-GHLA
     Dosage: 27 MG, WEEKLY
     Route: 058

REACTIONS (4)
  - Incorrect dose administered by device [Unknown]
  - Device mechanical issue [Unknown]
  - Device delivery system issue [Unknown]
  - Needle issue [Unknown]

NARRATIVE: CASE EVENT DATE: 20231112
